FAERS Safety Report 7870528-0 (Version None)
Quarter: 2011Q4

REPORT INFORMATION
  Report Type: 
  Country: None (occurrence: None)
  Receive Date: 20111029
  Receipt Date: 20110216
  Transmission Date: 20120403
  Serious: No
  Sender: FDA-Public Use
  Company Number: US-AMGEN-USASP2011009437

PATIENT
  Sex: Female

DRUGS (7)
  1. VITAMIN D [Concomitant]
  2. ENBREL [Suspect]
     Indication: RHEUMATOID ARTHRITIS
     Dosage: 25 MG, Q2WK
     Dates: start: 20080101
  3. HUMIRA [Concomitant]
  4. PROTONIX [Concomitant]
  5. FOLIC ACID [Concomitant]
  6. MOBIC [Concomitant]
  7. ARAVA [Concomitant]

REACTIONS (5)
  - SKIN INFECTION [None]
  - INFECTION [None]
  - ADVERSE DRUG REACTION [None]
  - FURUNCLE [None]
  - IMMUNE SYSTEM DISORDER [None]
